FAERS Safety Report 15854574 (Version 1)
Quarter: 2019Q1

REPORT INFORMATION
  Report Type: Spontaneous
  Country: US (occurrence: US)
  Receive Date: 20190122
  Receipt Date: 20190122
  Transmission Date: 20190417
  Serious: Yes (Other)
  Sender: FDA-Public Use
  Company Number: US-AMGEN INC.-USASP2019006558

PATIENT
  Sex: Female

DRUGS (2)
  1. AIMOVIG [Suspect]
     Active Substance: ERENUMAB-AOOE
     Indication: MIGRAINE
     Dosage: UNK
     Route: 065
  2. METHERGINE [Concomitant]
     Active Substance: METHYLERGONOVINE MALEATE
     Dosage: UNK

REACTIONS (7)
  - Cortisol decreased [Unknown]
  - Migraine [Unknown]
  - Dizziness [Unknown]
  - Cognitive disorder [Unknown]
  - Nausea [Unknown]
  - Aphasia [Unknown]
  - Depression [Unknown]
